FAERS Safety Report 14627859 (Version 2)
Quarter: 2018Q1

REPORT INFORMATION
  Report Type: Spontaneous
  Country: FR (occurrence: FR)
  Receive Date: 20180307
  Receipt Date: 20180307
  Transmission Date: 20180509
  Serious: Yes (Hospitalization)
  Sender: FDA-Public Use
  Company Number: FR-CONCORDIA PHARMACEUTICALS INC.-E2B_00010361

PATIENT
  Age: 40 Year
  Sex: Female

DRUGS (5)
  1. VISIPAQUE [Suspect]
     Active Substance: IODIXANOL
     Indication: COMPUTERISED TOMOGRAM
     Route: 042
     Dates: start: 20171018, end: 20171018
  2. PIVALONE [Suspect]
     Active Substance: TIXOCORTOL PIVALATE
     Indication: DYSPNOEA
     Route: 045
     Dates: start: 20170922
  3. HELICIDINE 10 POUR CENT, SIROP [Suspect]
     Active Substance: ESCARGOT
     Indication: COUGH
     Route: 048
     Dates: start: 20170922
  4. PREDNISOLONE. [Suspect]
     Active Substance: PREDNISOLONE
     Indication: DYSPNOEA
     Route: 048
     Dates: start: 20170922
  5. PYOSTACINE [Suspect]
     Active Substance: PRISTINAMYCIN
     Indication: DYSPNOEA
     Route: 048
     Dates: start: 20170922

REACTIONS (1)
  - Rash maculo-papular [Recovered/Resolved]

NARRATIVE: CASE EVENT DATE: 20171020
